FAERS Safety Report 5252109-0 (Version None)
Quarter: 2007Q1

REPORT INFORMATION
  Report Type: 
  Country: None (occurrence: None)
  Receive Date: 20070220
  Receipt Date: 20070202
  Transmission Date: 20070707
  Serious: Yes (Hospitalization)
  Sender: FDA-Public Use
  Company Number: THYM-11301

PATIENT
  Age: 43 Year
  Sex: Male

DRUGS (15)
  1. THYMOGLOBULIN [Suspect]
     Indication: PANCREAS TRANSPLANT
     Dosage: 75 MG QD IV
     Route: 042
     Dates: start: 20060224, end: 20060224
  2. THYMOGLOBULIN [Suspect]
     Indication: RENAL TRANSPLANT
     Dosage: 75 MG QD IV
     Route: 042
     Dates: start: 20060224, end: 20060224
  3. THYMOGLOBULIN [Suspect]
     Indication: PANCREAS TRANSPLANT
     Dates: start: 20060225, end: 20060303
  4. THYMOGLOBULIN [Suspect]
     Indication: RENAL TRANSPLANT
     Dates: start: 20060225, end: 20060303
  5. TACROLIMUS [Suspect]
     Indication: IMMUNOSUPPRESSION
     Dosage: 0.1 MG ONCE PO
     Route: 048
     Dates: start: 20060201, end: 20060201
  6. TACROLIMUS [Suspect]
     Indication: IMMUNOSUPPRESSION
     Dates: start: 20060201, end: 20060501
  7. SIROLIMUS [Suspect]
     Indication: IMMUNOSUPPRESSION
     Dosage: 8 MG QD PO
     Route: 048
     Dates: start: 20060502, end: 20060502
  8. SIROLIMUS [Suspect]
     Indication: IMMUNOSUPPRESSION
     Dates: start: 20060503
  9. BACTRIM [Concomitant]
  10. VALACYCLOVIR HCL [Concomitant]
  11. HEPARIN [Concomitant]
  12. ASPIRIN [Concomitant]
  13. CELLCEPT [Concomitant]
  14. SOLU-MEDROL [Concomitant]
  15. STEROIDS (PREDNISONE OR PREDNISOLONE) [Concomitant]

REACTIONS (3)
  - APHTHOUS STOMATITIS [None]
  - LEUKOPENIA [None]
  - PYREXIA [None]
